FAERS Safety Report 17581691 (Version 1)
Quarter: 2020Q1

REPORT INFORMATION
  Report Type: Spontaneous
  Country: US (occurrence: US)
  Receive Date: 20200324
  Receipt Date: 20200324
  Transmission Date: 20200409
  Serious: Yes (Life-Threatening)
  Sender: FDA-Public Use
  Company Number: None

PATIENT
  Age: 21 Year
  Sex: Female
  Weight: 98.55 kg

DRUGS (1)
  1. ONDANSETRON [Suspect]
     Active Substance: ONDANSETRON
     Indication: PROCEDURAL NAUSEA
     Dosage: ?          OTHER FREQUENCY:ONE DOSE ONLY;?
     Route: 042
     Dates: start: 20200131, end: 20200131

REACTIONS (2)
  - Dizziness [None]
  - Bradycardia [None]

NARRATIVE: CASE EVENT DATE: 20200131
